FAERS Safety Report 20180042 (Version 1)
Quarter: 2021Q4

REPORT INFORMATION
  Report Type: Spontaneous
  Country: US (occurrence: US)
  Receive Date: 20211214
  Receipt Date: 20211214
  Transmission Date: 20220303
  Serious: No
  Sender: FDA-Public Use
  Company Number: US-NOVARTISTESTPH-NVSC2021US282456

PATIENT
  Sex: Female
  Weight: 65.83 kg

DRUGS (7)
  1. XOLAIR [Suspect]
     Active Substance: OMALIZUMAB
     Indication: Urticaria
     Dosage: UNK
     Route: 058
     Dates: start: 201912
  2. XOLAIR [Suspect]
     Active Substance: OMALIZUMAB
     Indication: Swollen tongue
     Dosage: UNK, QMO
     Route: 058
     Dates: start: 20211101, end: 20211101
  3. HYDROXYZINE [Suspect]
     Active Substance: HYDROXYZINE HYDROCHLORIDE
     Indication: Rash
     Route: 048
  4. PEPCID [Concomitant]
     Active Substance: FAMOTIDINE
     Indication: Product used for unknown indication
     Route: 042
  5. PEPCID [Concomitant]
     Active Substance: FAMOTIDINE
     Route: 065
  6. EPINEPHRINE [Concomitant]
     Active Substance: EPINEPHRINE
     Indication: Product used for unknown indication
     Route: 065
  7. PREDNISONE [Concomitant]
     Active Substance: PREDNISONE
     Indication: Product used for unknown indication
     Dosage: 2 TABLETS IN THE MORNING AND 2 TABLETS IN THE EVENING
     Route: 065

REACTIONS (9)
  - Taste disorder [Recovered/Resolved]
  - Somnolence [Recovered/Resolved]
  - Swelling [Recovered/Resolved]
  - Nausea [Recovered/Resolved]
  - Diarrhoea [Recovered/Resolved]
  - Urticaria [Not Recovered/Not Resolved]
  - Rash [Recovered/Resolved]
  - Pruritus [Recovered/Resolved]
  - Off label use [Unknown]

NARRATIVE: CASE EVENT DATE: 20191201
